FAERS Safety Report 15613114 (Version 1)
Quarter: 2018Q4

REPORT INFORMATION
  Report Type: Report from Study
  Country: BR (occurrence: BR)
  Receive Date: 20181113
  Receipt Date: 20181113
  Transmission Date: 20190205
  Serious: Yes (Other)
  Sender: FDA-Public Use
  Company Number: PHHY2018BR058871

PATIENT
  Sex: Female
  Weight: 92 kg

DRUGS (2)
  1. SANDOSTATIN LAR DEPOT [Suspect]
     Active Substance: OCTREOTIDE ACETATE
     Dosage: 20 MG, EVERY 6 WEEKS
     Route: 030
  2. SANDOSTATIN LAR DEPOT [Suspect]
     Active Substance: OCTREOTIDE ACETATE
     Indication: ACROMEGALY
     Dosage: 20 MG, QMO
     Route: 030
     Dates: start: 2007

REACTIONS (4)
  - Insulin-like growth factor decreased [Not Recovered/Not Resolved]
  - Salivary gland neoplasm [Unknown]
  - Inappropriate schedule of product administration [Unknown]
  - Gallbladder neoplasm [Unknown]

NARRATIVE: CASE EVENT DATE: 2017
